FAERS Safety Report 20609539 (Version 1)
Quarter: 2022Q1

REPORT INFORMATION
  Report Type: Spontaneous
  Country: BR (occurrence: None)
  Receive Date: 20220318
  Receipt Date: 20220318
  Transmission Date: 20220423
  Serious: Yes (Hospitalization)
  Sender: FDA-Public Use
  Company Number: BR-ROCHE-3049661

PATIENT
  Age: 70 Year
  Sex: Male
  Weight: 74.4 kg

DRUGS (1)
  1. GAZYVA [Suspect]
     Active Substance: OBINUTUZUMAB
     Indication: Product used for unknown indication
     Dosage: 1000 MG/DAY FOR 28 DAYS
     Route: 042

REACTIONS (1)
  - Nasal obstruction [Recovered/Resolved]

NARRATIVE: CASE EVENT DATE: 20210903
